FAERS Safety Report 15228819 (Version 1)
Quarter: 2018Q3

REPORT INFORMATION
  Report Type: Spontaneous
  Country: FR (occurrence: FR)
  Receive Date: 20180801
  Receipt Date: 20180801
  Transmission Date: 20181010
  Serious: Yes (Death)
  Sender: FDA-Public Use
  Company Number: PHHY2018FR059594

PATIENT
  Age: 74 Year
  Sex: Female

DRUGS (3)
  1. BROMAZEPAM [Suspect]
     Active Substance: BROMAZEPAM
     Indication: ANXIETY
     Dosage: 5 MG, QD
     Route: 048
     Dates: start: 20140305
  2. TACROLIMUS. [Suspect]
     Active Substance: TACROLIMUS
     Indication: RENAL TRANSPLANT
     Dosage: 16 MG, QD
     Route: 048
     Dates: start: 2007
  3. AZATHIOPRINE. [Interacting]
     Active Substance: AZATHIOPRINE
     Indication: RENAL TRANSPLANT
     Dosage: 50 MG, QD
     Route: 048
     Dates: start: 2007

REACTIONS (3)
  - Pneumonia [Fatal]
  - Respiratory distress [Recovering/Resolving]
  - Septic shock [Fatal]

NARRATIVE: CASE EVENT DATE: 20140310
